FAERS Safety Report 11416229 (Version 1)
Quarter: 2015Q3

REPORT INFORMATION
  Report Type: Spontaneous
  Country: US (occurrence: US)
  Receive Date: 20150825
  Receipt Date: 20150825
  Transmission Date: 20151125
  Serious: No
  Sender: FDA-Public Use
  Company Number: US-PFIZER INC-2015277881

PATIENT
  Age: 72 Year
  Sex: Male
  Weight: 63 kg

DRUGS (1)
  1. VFEND [Suspect]
     Active Substance: VORICONAZOLE
     Indication: PNEUMONIA
     Dosage: 1 DF, DAILY (1 PILL A DAY)
     Route: 048
     Dates: start: 20150727, end: 20150812

REACTIONS (2)
  - Hepatic enzyme increased [Unknown]
  - Liver disorder [Unknown]

NARRATIVE: CASE EVENT DATE: 2015
